FAERS Safety Report 11937736 (Version 1)
Quarter: 2016Q1

REPORT INFORMATION
  Report Type: Spontaneous
  Country: US (occurrence: None)
  Receive Date: 20160120
  Receipt Date: 20160120
  Transmission Date: 20160526
  Serious: Yes (Other)
  Sender: FDA-Public Use
  Company Number: None

PATIENT
  Age: 51 Year
  Sex: Female
  Weight: 45.27 kg

DRUGS (1)
  1. FORTEO [Suspect]
     Active Substance: TERIPARATIDE
     Indication: OSTEOPOROSIS
     Dosage: 600 MCG/2.4 ML PEN QD SUBCUTANEOUS
     Route: 058
     Dates: start: 20151217, end: 20160109

REACTIONS (6)
  - Headache [None]
  - Abdominal pain [None]
  - Joint range of motion decreased [None]
  - Arthralgia [None]
  - Myalgia [None]
  - Incision site pain [None]

NARRATIVE: CASE EVENT DATE: 20151217
